FAERS Safety Report 17432253 (Version 1)
Quarter: 2020Q1

REPORT INFORMATION
  Report Type: Spontaneous
  Country: US (occurrence: US)
  Receive Date: 20200218
  Receipt Date: 20200218
  Transmission Date: 20200409
  Serious: Yes (Other)
  Sender: FDA-Public Use
  Company Number: US-SA-2020SA035303

PATIENT

DRUGS (1)
  1. THYMOGLOBULIN [Suspect]
     Active Substance: LAPINE T-LYMPHOCYTE IMMUNE GLOBULIN
     Indication: IMMUNOSUPPRESSION
     Dosage: UNK
     Dates: start: 2019

REACTIONS (3)
  - Incorrect drug administration rate [Unknown]
  - Anaphylactic reaction [Unknown]
  - Resuscitation [Unknown]

NARRATIVE: CASE EVENT DATE: 2019
